FAERS Safety Report 15780616 (Version 1)
Quarter: 2019Q1

REPORT INFORMATION
  Report Type: Spontaneous
  Country: US (occurrence: US)
  Receive Date: 20190102
  Receipt Date: 20190102
  Transmission Date: 20190417
  Serious: No
  Sender: FDA-Public Use
  Company Number: US-UNITED THERAPEUTICS-UNT-2018-021457

PATIENT
  Age: 53 Year
  Sex: Female
  Weight: 74.83 kg

DRUGS (2)
  1. COUMADIN [Concomitant]
     Active Substance: WARFARIN SODIUM
     Indication: PRODUCT USED FOR UNKNOWN INDICATION
     Route: 065
  2. REMODULIN [Suspect]
     Active Substance: TREPROSTINIL
     Indication: PULMONARY ARTERIAL HYPERTENSION
     Dosage: 0.105 ?G/KG, CONTINUING
     Route: 058
     Dates: start: 20110126

REACTIONS (7)
  - Infusion site haemorrhage [Unknown]
  - Fatigue [Unknown]
  - Weight decreased [Unknown]
  - Dizziness [Unknown]
  - Malaise [Unknown]
  - Somnolence [Unknown]
  - Anxiety [Unknown]

NARRATIVE: CASE EVENT DATE: 201812
